FAERS Safety Report 17686773 (Version 1)
Quarter: 2020Q2

REPORT INFORMATION
  Report Type: Spontaneous
  Country: US (occurrence: US)
  Receive Date: 20200421
  Receipt Date: 20200421
  Transmission Date: 20200714
  Serious: Yes (Other)
  Sender: FDA-Public Use
  Company Number: US-AUROBINDO-AUR-APL-2020-018843

PATIENT
  Age: 79 Year
  Sex: Female

DRUGS (2)
  1. CEFEPIME [Suspect]
     Active Substance: CEFEPIME HYDROCHLORIDE
     Indication: WOUND INFECTION
     Dosage: UNK
     Route: 065
  2. VANCOMYCIN [Suspect]
     Active Substance: VANCOMYCIN
     Indication: WOUND INFECTION
     Dosage: UNK
     Route: 065

REACTIONS (11)
  - Generalised oedema [Unknown]
  - Jaundice [Unknown]
  - Murphy^s sign positive [Unknown]
  - Tenderness [Unknown]
  - Renal impairment [Recovering/Resolving]
  - Pruritus [Unknown]
  - Rash maculo-papular [Unknown]
  - Drug reaction with eosinophilia and systemic symptoms [Unknown]
  - Abdominal pain upper [Unknown]
  - Cholelithiasis [Unknown]
  - Ocular icterus [Unknown]
